FAERS Safety Report 21907817 (Version 3)
Quarter: 2023Q2

REPORT INFORMATION
  Report Type: Report from Study
  Country: US (occurrence: US)
  Receive Date: 20230125
  Receipt Date: 20230428
  Transmission Date: 20230722
  Serious: Yes (Other)
  Sender: FDA-Public Use
  Company Number: US-ABBVIE-4280898

PATIENT
  Age: 50 Year
  Sex: Male

DRUGS (2)
  1. RINVOQ [Suspect]
     Active Substance: UPADACITINIB
     Indication: Colitis ulcerative
     Dosage: FORM STRENGTH: 45 MG
     Route: 048
     Dates: start: 20221223, end: 202304
  2. RINVOQ [Suspect]
     Active Substance: UPADACITINIB
     Indication: Colitis ulcerative
     Dosage: FORM STRENGTH: 30 MILLIGRAM
     Route: 048
     Dates: start: 202304

REACTIONS (7)
  - Fistula [Unknown]
  - Fatigue [Unknown]
  - Frequent bowel movements [Not Recovered/Not Resolved]
  - Flatulence [Not Recovered/Not Resolved]
  - Arthralgia [Not Recovered/Not Resolved]
  - Off label use [Unknown]
  - Infected fistula [Unknown]

NARRATIVE: CASE EVENT DATE: 20230101
